FAERS Safety Report 9169183 (Version 4)
Quarter: 2014Q4

REPORT INFORMATION
  Report Type: Report from Study
  Country: HK (occurrence: HK)
  Receive Date: 20130318
  Receipt Date: 20141121
  Transmission Date: 20150529
  Serious: Yes (Hospitalization)
  Sender: FDA-Public Use
  Company Number: HK-BRISTOL-MYERS SQUIBB COMPANY-17449703

PATIENT
  Age: 48 Year
  Sex: Female
  Weight: 64 kg

DRUGS (18)
  1. FILGRASTIM [Concomitant]
     Active Substance: FILGRASTIM
     Dosage: DOSE:30(UNITS NOS).
     Dates: start: 20110715, end: 20110721
  2. LEVOFLOXACIN. [Concomitant]
     Active Substance: LEVOFLOXACIN
     Dates: start: 20110715, end: 20110723
  3. PACLITAXEL. [Suspect]
     Active Substance: PACLITAXEL
     Indication: OVARIAN CANCER
     Dosage: 24MAY2011(280MG,1 IN 3WK)?24MAR11-13JUN11?21JUN11-01DEC11
     Route: 042
     Dates: start: 20110524, end: 20111201
  4. CARBOPLATIN. [Suspect]
     Active Substance: CARBOPLATIN
     Indication: OVARIAN CANCER
     Dosage: 750MG,1 IN 3WK?24MAY11-13JUN11?21JUN11-01DEC11:164 DAYS
     Route: 042
     Dates: start: 20110524, end: 20111201
  5. MEFENAMIC ACID. [Concomitant]
     Active Substance: MEFENAMIC ACID
  6. OXETACAINE [Concomitant]
     Active Substance: OXETHAZAINE
  7. MAGNESIUM HYDROXIDE. [Concomitant]
     Active Substance: MAGNESIUM HYDROXIDE
  8. PHENSEDYL [Concomitant]
     Dates: start: 20110703, end: 20110706
  9. CHLORHEXIDINE [Concomitant]
     Active Substance: CHLORHEXIDINE
  10. BEVACIZUMAB [Suspect]
     Active Substance: BEVACIZUMAB
     Indication: OVARIAN CANCER
     Dosage: 24MAY11:950MG,1 IN 3 WKS?24MAY11-13JUN11?21JUN11-01DEC11:164DYS
     Dates: start: 20110524, end: 20111201
  11. LAMIVUDINE. [Concomitant]
     Active Substance: LAMIVUDINE
     Dates: start: 20110523, end: 20130518
  12. ALUMINIUM HYDROXIDE [Concomitant]
     Active Substance: ALUMINUM HYDROXIDE
  13. CIMETIDINE [Concomitant]
     Active Substance: CIMETIDINE
  14. DICLOFENAC [Concomitant]
     Active Substance: DICLOFENAC
  15. MAXOLON [Concomitant]
     Active Substance: METOCLOPRAMIDE HYDROCHLORIDE
     Dates: start: 20110715, end: 20110715
  16. PEPCIDINE [Concomitant]
     Active Substance: FAMOTIDINE
     Dates: start: 20110715, end: 20110716
  17. CHLORHEXIDINE GLUCONATE. [Concomitant]
     Active Substance: CHLORHEXIDINE GLUCONATE
     Dosage: DOSE:2 APP
     Dates: start: 20110706
  18. G-CSF [Concomitant]
     Active Substance: FILGRASTIM
     Dates: start: 20110527, end: 20110602

REACTIONS (5)
  - Infection [Recovered/Resolved]
  - Pulmonary tuberculosis [Recovered/Resolved]
  - Urinary tract infection [Recovered/Resolved]
  - Syncope [Recovered/Resolved]
  - Pyrexia [Recovered/Resolved]

NARRATIVE: CASE EVENT DATE: 20110604
